FAERS Safety Report 9176496 (Version 1)
Quarter: 2013Q1

REPORT INFORMATION
  Report Type: Spontaneous
  Country: US (occurrence: None)
  Receive Date: 20130320
  Receipt Date: 20130320
  Transmission Date: 20140127
  Serious: Yes (Hospitalization, Disabling, Other)
  Sender: FDA-Public Use
  Company Number: None

PATIENT
  Age: 48 Year
  Sex: Female
  Weight: 65.77 kg

DRUGS (2)
  1. ADIPEX-P [Suspect]
     Dosage: 37.5 MG 1
  2. PROZAC [Suspect]
     Dosage: 20 MG 1

REACTIONS (2)
  - Cerebrovascular accident [None]
  - Medication error [None]
